FAERS Safety Report 9495560 (Version 2)
Quarter: 2014Q1

REPORT INFORMATION
  Report Type: Spontaneous
  Country: US (occurrence: US)
  Receive Date: 20130903
  Receipt Date: 20140318
  Transmission Date: 20141002
  Serious: Yes (Hospitalization)
  Sender: FDA-Public Use
  Company Number: US-BAYER-2013-105452

PATIENT
  Age: 47 Year
  Sex: Female

DRUGS (4)
  1. MIRENA [Suspect]
     Indication: CONTRACEPTION
     Dosage: 20 MCG/24HR, CONT
     Route: 015
     Dates: start: 20020314, end: 20070802
  2. IBUPROFEN [Concomitant]
  3. CLARITIN [Concomitant]
  4. SYNTHROID [Concomitant]

REACTIONS (6)
  - Uterine perforation [None]
  - Device difficult to use [None]
  - Device misuse [None]
  - Medical device pain [None]
  - Infection [None]
  - Injury [None]
